FAERS Safety Report 8850079 (Version 6)
Quarter: 2012Q4

REPORT INFORMATION
  Report Type: 
  Country: CA (occurrence: CA)
  Receive Date: 20121019
  Receipt Date: 20121212
  Transmission Date: 20130627
  Serious: Yes (Hospitalization)
  Sender: FDA-Public Use
  Company Number: CA-GLAXOSMITHKLINE-A0976876A

PATIENT
  Age: 52 Year
  Sex: Female
  Weight: 156 kg

DRUGS (3)
  1. BENLYSTA [Suspect]
     Indication: SYSTEMIC LUPUS ERYTHEMATOSUS
     Dosage: 1540MG See dosage text
     Route: 042
     Dates: start: 20120425, end: 20121205
  2. CORTISONE [Concomitant]
     Route: 065
  3. PERCOCET [Concomitant]
     Route: 065

REACTIONS (43)
  - Gastroenteritis viral [Recovered/Resolved]
  - Abdominal pain [Recovered/Resolved]
  - Nausea [Recovered/Resolved]
  - Vomiting [Recovered/Resolved]
  - Diarrhoea [Recovered/Resolved]
  - Asthenia [Unknown]
  - Fatigue [Unknown]
  - Decreased appetite [Recovered/Resolved]
  - Headache [Recovering/Resolving]
  - Malaise [Not Recovered/Not Resolved]
  - Swelling [Not Recovered/Not Resolved]
  - Pain [Recovering/Resolving]
  - Hepatomegaly [Not Recovered/Not Resolved]
  - Arthralgia [Not Recovered/Not Resolved]
  - Gastric disorder [Not Recovered/Not Resolved]
  - Drug effect decreased [Not Recovered/Not Resolved]
  - Infusion site bruising [Recovered/Resolved]
  - Haemorrhage [Unknown]
  - Venous injury [Unknown]
  - Burning sensation [Recovering/Resolving]
  - Platelet count decreased [Unknown]
  - Inflammation [Unknown]
  - Pulmonary mass [Unknown]
  - Increased tendency to bruise [Unknown]
  - Abdominal pain upper [Unknown]
  - Body temperature increased [Recovered/Resolved]
  - Hyperhidrosis [Recovered/Resolved]
  - Flushing [Recovered/Resolved]
  - Injection site discolouration [Unknown]
  - Infusion site haemorrhage [Recovered/Resolved]
  - Oedema peripheral [Unknown]
  - Weight increased [Unknown]
  - Impaired work ability [Unknown]
  - Abdominal pain upper [Unknown]
  - Erythema [Unknown]
  - Skin warm [Unknown]
  - Fungal infection [Recovered/Resolved]
  - Lower respiratory tract infection [Not Recovered/Not Resolved]
  - Lip infection [Unknown]
  - Oral infection [Not Recovered/Not Resolved]
  - Liver injury [Unknown]
  - Splenomegaly [Unknown]
  - Lung disorder [Unknown]
